FAERS Safety Report 24024110 (Version 2)
Quarter: 2024Q3

REPORT INFORMATION
  Report Type: Spontaneous
  Country: SE (occurrence: SE)
  Receive Date: 20240627
  Receipt Date: 20240710
  Transmission Date: 20241016
  Serious: No
  Sender: ROCHE
  Company Number: SE-ROCHE-3575189

PATIENT
  Sex: Male

DRUGS (5)
  1. VABYSMO [Suspect]
     Active Substance: FARICIMAB\FARICIMAB-SVOA
     Indication: Retinal vein occlusion
     Dosage: DATE OF MOST RECENT DOSE OF FARICIMAB:14/MAY/2024
     Route: 065
     Dates: start: 20240416
  2. EYLEA [Concomitant]
     Active Substance: AFLIBERCEPT
  3. OZURDEX [Concomitant]
     Active Substance: DEXAMETHASONE
  4. ACETAZOLAMIDE [Concomitant]
     Active Substance: ACETAZOLAMIDE
  5. COSOPT [Concomitant]
     Active Substance: DORZOLAMIDE HYDROCHLORIDE\TIMOLOL MALEATE

REACTIONS (6)
  - Eye inflammation [Recovering/Resolving]
  - Vision blurred [Unknown]
  - Visual impairment [Unknown]
  - Pain [Unknown]
  - Iritis [Recovering/Resolving]
  - Vitritis [Recovering/Resolving]

NARRATIVE: CASE EVENT DATE: 20240515
